FAERS Safety Report 8336597 (Version 2)
Quarter: 2013Q1

REPORT INFORMATION
  Report Type: Spontaneous
  Country: CA (occurrence: CA)
  Receive Date: 20120113
  Receipt Date: 20130329
  Transmission Date: 20140127
  Serious: Yes (Other)
  Sender: FDA-Public Use
  Company Number: CA-JNJFOC-20120102564

PATIENT
  Age: 70 Year
  Sex: Female
  Weight: 47 kg

DRUGS (7)
  1. REMICADE [Suspect]
     Indication: CROHN^S DISEASE
     Dosage: CONFLICTINGLY REPORTED END DATE AS OCT-2013
     Route: 042
     Dates: start: 20100617, end: 20111122
  2. PENTASA [Concomitant]
     Indication: CROHN^S DISEASE
     Route: 065
  3. VITAMIN B 12 [Concomitant]
     Indication: VITAMIN B12 DEFICIENCY
  4. ADALAT [Concomitant]
     Indication: HYPERTENSION
     Route: 065
  5. PANTOLOC [Concomitant]
     Indication: DYSPEPSIA
     Route: 065
  6. INDERAL [Concomitant]
     Indication: HYPERTENSION
     Route: 065
  7. PREMARIN [Concomitant]

REACTIONS (2)
  - Precancerous skin lesion [Unknown]
  - Actinic keratosis [Unknown]
